FAERS Safety Report 12932368 (Version 3)
Quarter: 2016Q4

REPORT INFORMATION
  Report Type: Report from Study
  Country: US (occurrence: US)
  Receive Date: 20161111
  Receipt Date: 20161229
  Transmission Date: 20170207
  Serious: Yes (Hospitalization, Other)
  Sender: FDA-Public Use
  Company Number: US-BAYER-2016-190697

PATIENT
  Age: 64 Year
  Sex: Male

DRUGS (7)
  1. STIVARGA [Suspect]
     Active Substance: REGORAFENIB
     Indication: COLORECTAL CANCER
     Dosage: 160 MG, QD
     Route: 048
     Dates: start: 20160925, end: 20161006
  2. STIVARGA [Suspect]
     Active Substance: REGORAFENIB
     Indication: COLORECTAL CANCER
     Dosage: DAILY DOSE 160 MG
     Route: 048
     Dates: start: 2016, end: 20161205
  3. WELLBUTRIN [Concomitant]
     Active Substance: BUPROPION HYDROCHLORIDE
  4. ASPIRIN. [Concomitant]
     Active Substance: ASPIRIN
     Dosage: 81 MG, DAILY
  5. PROZAC [Concomitant]
     Active Substance: FLUOXETINE HYDROCHLORIDE
  6. LIPITOR [Concomitant]
     Active Substance: ATORVASTATIN CALCIUM
     Dosage: 20 MG, DAILY
  7. CENTRUM [Concomitant]
     Active Substance: VITAMINS

REACTIONS (28)
  - Chills [Recovered/Resolved]
  - Dysphonia [Not Recovered/Not Resolved]
  - Pain in extremity [None]
  - Dysphonia [None]
  - Musculoskeletal pain [None]
  - Fatigue [Not Recovered/Not Resolved]
  - Abasia [None]
  - Hyperkeratosis [None]
  - Paraesthesia [None]
  - Toothache [None]
  - Wrong technique in product usage process [None]
  - Neck pain [None]
  - Asthenia [None]
  - Limb discomfort [None]
  - Hypoaesthesia [None]
  - Glossodynia [None]
  - Headache [None]
  - Fatigue [Recovering/Resolving]
  - Skin exfoliation [None]
  - Product use issue [None]
  - Weight decreased [None]
  - Visual impairment [Not Recovered/Not Resolved]
  - Bone pain [None]
  - Pyrexia [Recovered/Resolved]
  - Hyperhidrosis [None]
  - Decreased activity [None]
  - Diarrhoea [None]
  - Pain [None]

NARRATIVE: CASE EVENT DATE: 2016
